FAERS Safety Report 20052676 (Version 2)
Quarter: 2021Q4

REPORT INFORMATION
  Report Type: Spontaneous
  Country: AT (occurrence: AT)
  Receive Date: 20211110
  Receipt Date: 20211227
  Transmission Date: 20220303
  Serious: Yes (Death, Other)
  Sender: FDA-Public Use
  Company Number: None

PATIENT
  Age: 66 Year
  Sex: Female
  Weight: 80.4 kg

DRUGS (20)
  1. DOCETAXEL [Suspect]
     Active Substance: DOCETAXEL
     Indication: HER2 positive breast cancer
     Dosage: MOST RECENT DOSE PRIOR TO THE EVENT: 09/JUN/2017
     Route: 042
     Dates: start: 20170224
  2. CAPECITABINE [Suspect]
     Active Substance: CAPECITABINE
     Indication: HER2 positive breast cancer
     Dosage: MOST RECENT DOSE PRIOR TO THE EVENT: 30/DEC/2020
     Route: 048
     Dates: start: 20191002
  3. LAPATINIB [Suspect]
     Active Substance: LAPATINIB
     Indication: HER2 positive breast cancer
     Dosage: MOST RECENT DOSE: 07/JAN/2020
     Route: 048
     Dates: start: 20191002
  4. PERTUZUMAB [Suspect]
     Active Substance: PERTUZUMAB
     Indication: HER2 positive breast cancer
     Dosage: MOST RECENT DOSE PRIOR TO THE EVENT: 22/APR/2020
     Route: 042
     Dates: start: 20170224
  5. ADO-TRASTUZUMAB EMTANSINE [Suspect]
     Active Substance: ADO-TRASTUZUMAB EMTANSINE
     Indication: HER2 positive breast cancer
     Dosage: MOST RECENT DOSE ON: 09/SEP/2019
     Route: 042
     Dates: start: 20190306
  6. TRASTUZUMAB [Suspect]
     Active Substance: TRASTUZUMAB
     Indication: HER2 positive breast cancer
     Dosage: MOST RECENT DOSE PRIOR TO THE EVENT: 30/DEC/2020
     Route: 042
     Dates: start: 20170224
  7. VINORELBINE [Suspect]
     Active Substance: VINORELBINE TARTRATE
     Indication: HER2 positive breast cancer
     Dosage: MOST RECENT DOSE ON: 22/JUL/2020
     Route: 042
     Dates: start: 20200422
  8. DOXORUBICIN [Suspect]
     Active Substance: DOXORUBICIN
     Indication: HER2 positive breast cancer
     Route: 042
     Dates: start: 20210608, end: 20210608
  9. FULVESTRANT [Suspect]
     Active Substance: FULVESTRANT
     Indication: HER2 positive breast cancer
     Dosage: MOST RECENT DOSE PRIOR TO THE EVENT: 16/NOV/2017
     Route: 058
     Dates: start: 20171002
  10. PARACODIN [Concomitant]
     Indication: Cough
     Dosage: ONGOING NOT CHECKED
     Route: 065
     Dates: start: 20210324, end: 20210427
  11. PARACODIN [Concomitant]
     Indication: Cough
  12. EUTHYROX [Concomitant]
     Active Substance: LEVOTHYROXINE SODIUM
     Indication: Product used for unknown indication
     Dosage: ONGOING CHECKED
     Route: 065
     Dates: start: 20170303
  13. XGEVA [Concomitant]
     Active Substance: DENOSUMAB
     Indication: Product used for unknown indication
     Dosage: ONGOING CHECKED
     Route: 065
     Dates: start: 20170202
  14. EDOXABAN TOSYLATE [Concomitant]
     Active Substance: EDOXABAN TOSYLATE
     Indication: Product used for unknown indication
     Dosage: ONGOING CHECKED
     Route: 065
     Dates: start: 20200613
  15. CARBOXYMETHYLCELLULOSE SODIUM [Concomitant]
     Active Substance: CARBOXYMETHYLCELLULOSE SODIUM
     Indication: Product used for unknown indication
     Dosage: ONGOING CHECKED
     Route: 065
     Dates: start: 20210105
  16. METAMIZOLE [Concomitant]
     Active Substance: METAMIZOLE
     Indication: Product used for unknown indication
     Dosage: ONGOING NOT CHECKED
     Route: 065
     Dates: start: 20210117, end: 20210315
  17. VITAMINS WITH MINERALS [Concomitant]
     Active Substance: MINERALS\VITAMINS
     Indication: Product used for unknown indication
     Dosage: ONGOING CHECKED
     Route: 065
     Dates: start: 20170203
  18. PREGABALIN [Concomitant]
     Active Substance: PREGABALIN
     Indication: Product used for unknown indication
     Dosage: ONGOING CHECKED
     Route: 065
     Dates: start: 20190821
  19. PANTOPRAZOLE [Concomitant]
     Active Substance: PANTOPRAZOLE
     Indication: Gastrointestinal disorder
     Dosage: ONGOING NOT CHECKED
     Route: 065
     Dates: start: 20210317, end: 20210607
  20. OLEOVIT-D3 [Concomitant]
     Indication: Product used for unknown indication
     Dosage: ONGOING CHECKED
     Route: 065
     Dates: start: 20170329

REACTIONS (2)
  - General physical health deterioration [Recovered/Resolved]
  - General physical health deterioration [Fatal]

NARRATIVE: CASE EVENT DATE: 20210303
